FAERS Safety Report 8006873-8 (Version None)
Quarter: 2011Q4

REPORT INFORMATION
  Report Type: 
  Country: None (occurrence: None)
  Receive Date: 20111227
  Receipt Date: 20111216
  Transmission Date: 20120403
  Serious: Yes (Hospitalization, Other)
  Sender: FDA-Public Use
  Company Number: US-BAYER-2011-041878

PATIENT
  Age: 31 Year
  Sex: Female
  Weight: 72.562 kg

DRUGS (6)
  1. PROZAC [Concomitant]
     Indication: ANXIETY
     Dosage: 20 MG, DAILY
  2. XANAX [Concomitant]
  3. YAZ [Suspect]
     Indication: ACNE
     Dosage: UNK
     Dates: start: 20081029, end: 20081201
  4. PHENTERMINE HYDROCHLORIDE [Concomitant]
  5. YASMIN [Suspect]
     Indication: ACNE
     Dosage: UNK
     Dates: start: 20041201, end: 20050301
  6. DROSPIRENONE AND ETHINYL ESTRADIOL [Suspect]
     Indication: ACNE
     Dosage: UNK
     Dates: start: 20081201, end: 20090804

REACTIONS (9)
  - GENERAL PHYSICAL HEALTH DETERIORATION [None]
  - BIPOLAR DISORDER [None]
  - PAIN [None]
  - PULMONARY EMBOLISM [None]
  - DEPRESSION [None]
  - DYSPNOEA [None]
  - CHEST PAIN [None]
  - EMOTIONAL DISTRESS [None]
  - ANXIETY [None]
